FAERS Safety Report 9421418 (Version 4)
Quarter: 2013Q4

REPORT INFORMATION
  Report Type: Report from Study
  Country: DE (occurrence: DE)
  Receive Date: 20130725
  Receipt Date: 20131220
  Transmission Date: 20140711
  Serious: Yes (Hospitalization)
  Sender: FDA-Public Use
  Company Number: DE-ROCHE-1253254

PATIENT
  Sex: Male
  Weight: 70 kg

DRUGS (5)
  1. BEVACIZUMAB [Suspect]
     Indication: LUNG ADENOCARCINOMA
     Route: 042
     Dates: start: 20130225, end: 20130715
  2. CISPLATIN [Suspect]
     Indication: LUNG NEOPLASM MALIGNANT
     Dosage: ON DAY 1 AND 8 OF EACH 3 WEEK CYCLE.
     Route: 042
     Dates: start: 20130121, end: 20130304
  3. PEMETREXED DISODIUM [Suspect]
     Indication: LUNG NEOPLASM MALIGNANT
     Route: 042
     Dates: start: 20130121, end: 20130218
  4. CARBOPLATIN [Suspect]
     Indication: LUNG NEOPLASM MALIGNANT
     Route: 042
     Dates: start: 20130318, end: 20130715
  5. PACLITAXEL [Suspect]
     Indication: LUNG NEOPLASM MALIGNANT
     Route: 042
     Dates: start: 20130318, end: 20130722

REACTIONS (4)
  - General physical health deterioration [Not Recovered/Not Resolved]
  - Tinnitus [Unknown]
  - Hypoacusis [Unknown]
  - Leukopenia [Recovering/Resolving]
